FAERS Safety Report 5977575-4 (Version None)
Quarter: 2008Q4

REPORT INFORMATION
  Report Type: 
  Country: None (occurrence: None)
  Receive Date: 20081201
  Receipt Date: 20081201
  Transmission Date: 20090506
  Serious: Yes (Other)
  Sender: FDA-Public Use
  Company Number: None

PATIENT
  Age: 2 Year
  Sex: Female
  Weight: 13.1543 kg

DRUGS (1)
  1. PULMICORT-100 [Suspect]
     Indication: ASTHMA
     Dosage: 1 RESPUILE ONCE A DAY PO
     Route: 048
     Dates: start: 20081010, end: 20081115

REACTIONS (5)
  - ABNORMAL BEHAVIOUR [None]
  - AGGRESSION [None]
  - ILL-DEFINED DISORDER [None]
  - SCREAMING [None]
  - SLEEP DISORDER [None]
